FAERS Safety Report 10146949 (Version 1)
Quarter: 2014Q2

REPORT INFORMATION
  Report Type: Spontaneous
  Country: US (occurrence: US)
  Receive Date: 20140501
  Receipt Date: 20140501
  Transmission Date: 20141212
  Serious: Yes (Death, Hospitalization)
  Sender: FDA-Public Use
  Company Number: US-GLAXOSMITHKLINE-A1070641A

PATIENT
  Age: 50 Year
  Sex: Male

DRUGS (7)
  1. ZOFRAN [Suspect]
     Indication: PRODUCT USED FOR UNKNOWN INDICATION
  2. AMITRIPTYLINE [Concomitant]
  3. LISINOPRIL [Concomitant]
  4. INSULIN [Concomitant]
  5. PROTONIX [Concomitant]
  6. METHADONE [Concomitant]
  7. DILAUDID [Concomitant]

REACTIONS (2)
  - Sudden death [Fatal]
  - Electrocardiogram QT prolonged [Unknown]
